FAERS Safety Report 23594739 (Version 1)
Quarter: 2024Q1

REPORT INFORMATION
  Report Type: Spontaneous
  Country: US (occurrence: US)
  Receive Date: 20240305
  Receipt Date: 20240305
  Transmission Date: 20240410
  Serious: Yes (Other)
  Sender: FDA-Public Use
  Company Number: US-GLAXOSMITHKLINE-US2024AMR026073

PATIENT

DRUGS (1)
  1. ALBUTEROL SULFATE [Suspect]
     Active Substance: ALBUTEROL SULFATE
     Indication: Product used for unknown indication
     Dosage: UNK,90 MCG, 18G/200 METERED

REACTIONS (5)
  - Lung lobectomy [Unknown]
  - Vocal cord dysfunction [Unknown]
  - Speech disorder [Unknown]
  - Device use issue [Unknown]
  - Wrong technique in product usage process [Unknown]
